FAERS Safety Report 14816834 (Version 1)
Quarter: 2018Q2

REPORT INFORMATION
  Report Type: Report from Study
  Country: None (occurrence: ES)
  Receive Date: 20180426
  Receipt Date: 20180426
  Transmission Date: 20180711
  Serious: Yes (Hospitalization)
  Sender: FDA-Public Use
  Company Number: ES-BAUSCH-BL-2018-011802

PATIENT
  Age: 9 Month
  Sex: Female
  Weight: 6.7 kg

DRUGS (6)
  1. TIOGUANINA ASPEN [Suspect]
     Active Substance: THIOGUANINE ANHYDROUS
     Indication: ACUTE LYMPHOCYTIC LEUKAEMIA
     Route: 048
     Dates: start: 20180104, end: 20180106
  2. ZOVIRAX [Concomitant]
     Active Substance: ACYCLOVIR
     Indication: PROPHYLAXIS
     Dosage: 400MG/5ML (1 BOTTLE OF 100ML)
     Route: 048
     Dates: start: 20170606
  3. SEPTRIN PEDIATRIC [Concomitant]
     Indication: PROPHYLAXIS
     Dosage: 8 MG/40 MG/ML (1 BOTTLE OF 100ML)
     Route: 048
     Dates: start: 20170606
  4. DEXAMETASONA [Suspect]
     Active Substance: DEXAMETHASONE
     Indication: ACUTE LYMPHOCYTIC LEUKAEMIA
     Route: 048
     Dates: start: 20171221, end: 20180111
  5. COLECALCIFEROL [Concomitant]
     Active Substance: CHOLECALCIFEROL
     Indication: PROPHYLAXIS
     Route: 048
     Dates: start: 20170606
  6. CITARABINA [Suspect]
     Active Substance: CYTARABINE
     Indication: ACUTE LYMPHOCYTIC LEUKAEMIA
     Route: 042
     Dates: start: 20180104, end: 20180106

REACTIONS (3)
  - Influenza [Recovered/Resolved]
  - Otitis media [Recovered/Resolved]
  - Agranulocytosis [Recovered/Resolved]

NARRATIVE: CASE EVENT DATE: 20180106
